FAERS Safety Report 9248480 (Version 1)
Quarter: 2013Q2

REPORT INFORMATION
  Report Type: Spontaneous
  Country: US (occurrence: US)
  Receive Date: 20130423
  Receipt Date: 20130423
  Transmission Date: 20140414
  Serious: Yes (Other)
  Sender: FDA-Public Use
  Company Number: US-ROCHE-1022365

PATIENT
  Age: 41 Year
  Sex: Female
  Weight: 59.02 kg

DRUGS (2)
  1. ACCUTANE [Suspect]
     Indication: ACNE
     Route: 065
     Dates: start: 19830802, end: 19831121
  2. ACCUTANE [Suspect]
     Route: 065
     Dates: end: 1984

REACTIONS (4)
  - Colitis ulcerative [Unknown]
  - Inflammatory bowel disease [Unknown]
  - Rectal polyp [Unknown]
  - Irritable bowel syndrome [Unknown]
